FAERS Safety Report 7641874-0 (Version None)
Quarter: 2011Q3

REPORT INFORMATION
  Report Type: 
  Country: None (occurrence: None)
  Receive Date: 20110728
  Receipt Date: 20110714
  Transmission Date: 20111222
  Serious: Yes (Hospitalization)
  Sender: FDA-Public Use
  Company Number: DE-ROCHE-791949

PATIENT
  Sex: Female

DRUGS (5)
  1. CELLCEPT [Suspect]
     Indication: RENAL TRANSPLANT
     Route: 065
     Dates: start: 19960101
  2. BETA BLOCKER NOS [Concomitant]
  3. SANDIMMUNE [Concomitant]
     Indication: RENAL TRANSPLANT
     Dates: start: 19960101
  4. DIURETICS NOS [Concomitant]
  5. PREDNISONE [Concomitant]

REACTIONS (2)
  - HEART VALVE REPLACEMENT [None]
  - RASH PAPULAR [None]
